FAERS Safety Report 5997522-9 (Version None)
Quarter: 2008Q4

REPORT INFORMATION
  Report Type: 
  Country: None (occurrence: None)
  Receive Date: 20081212
  Receipt Date: 20081126
  Transmission Date: 20090506
  Serious: Yes (Hospitalization, Other)
  Sender: FDA-Public Use
  Company Number: US-ABBOTT-08P-163-0487927-00

PATIENT
  Sex: Female
  Weight: 133.93 kg

DRUGS (7)
  1. HUMIRA [Suspect]
     Indication: PSORIASIS
     Route: 058
     Dates: start: 20040101, end: 20080901
  2. HUMIRA [Suspect]
     Indication: RHEUMATOID ARTHRITIS
  3. HUMIRA [Suspect]
     Indication: PSORIATIC ARTHROPATHY
  4. BIRTH CONTROL PILL [Concomitant]
     Indication: CONTRACEPTION
     Route: 048
  5. IMODIUM [Concomitant]
     Indication: IRRITABLE BOWEL SYNDROME
     Route: 048
  6. WATER PILL [Concomitant]
     Indication: FLUID RETENTION
     Route: 048
  7. TRIAMCINOLONE ACETONIDE [Concomitant]
     Indication: PSORIASIS
     Route: 058
     Dates: start: 20081103, end: 20081103

REACTIONS (7)
  - ABASIA [None]
  - BREAST CELLULITIS [None]
  - CELLULITIS [None]
  - ERYTHEMA [None]
  - OEDEMA PERIPHERAL [None]
  - PAIN IN EXTREMITY [None]
  - STAPHYLOCOCCAL SKIN INFECTION [None]
